FAERS Safety Report 25195474 (Version 2)
Quarter: 2025Q2

REPORT INFORMATION
  Report Type: Spontaneous
  Country: US (occurrence: US)
  Receive Date: 20250415
  Receipt Date: 20250415
  Transmission Date: 20250716
  Serious: No
  Sender: SANOFI AVENTIS
  Company Number: US-SA-2025SA103644

PATIENT
  Sex: Female
  Weight: 84 kg

DRUGS (2)
  1. DUPIXENT [Suspect]
     Active Substance: DUPILUMAB
     Indication: Illness
     Dosage: 300 MG, QOW
     Route: 058
  2. BENLYSTA [Concomitant]
     Active Substance: BELIMUMAB

REACTIONS (2)
  - Pruritus [Unknown]
  - Product use in unapproved indication [Unknown]
